FAERS Safety Report 5900856-7 (Version None)
Quarter: 2008Q3

REPORT INFORMATION
  Report Type: 
  Country: None (occurrence: None)
  Receive Date: 20080924
  Receipt Date: 20080805
  Transmission Date: 20090109
  Serious: Yes (Other)
  Sender: FDA-Public Use
  Company Number: 2008S1007682

PATIENT
  Age: 66 Year
  Sex: Female

DRUGS (3)
  1. SODIUM PHOSPHATE DIBASIC/SODIUM PHOSPHATE MONOBASIC (ANHYDRATE) (SODIU [Suspect]
     Indication: COLONOSCOPY
     Dosage: 169;PO
     Route: 048
  2. BETA BLOCKING AGENTS (BETA BLOCKING AGENTS) [Concomitant]
  3. DIURETICS (DIURETICS) [Concomitant]

REACTIONS (8)
  - APPENDICITIS [None]
  - CALCINOSIS [None]
  - HYPOAESTHESIA [None]
  - HYPOCALCAEMIA [None]
  - NEPHROPATHY [None]
  - OEDEMA [None]
  - RENAL CYST [None]
  - TUBULOINTERSTITIAL NEPHRITIS [None]
